FAERS Safety Report 4424634-3 (Version None)
Quarter: 2004Q3

REPORT INFORMATION
  Report Type: 
  Country: None (occurrence: None)
  Receive Date: 20040812
  Receipt Date: 20040604
  Transmission Date: 20050211
  Serious: Yes (Other)
  Sender: FDA-Public Use
  Company Number: PHEH2004US06148

PATIENT
  Age: 30 Year
  Sex: Female

DRUGS (3)
  1. ZELNORM [Suspect]
     Indication: IRRITABLE BOWEL SYNDROME
     Dosage: 6 MG, QD
     Route: 048
     Dates: start: 20030901
  2. ACIPHEX [Concomitant]
     Dosage: 20 MG, QD
     Route: 048
  3. TOPROL-XL [Concomitant]
     Dosage: 50 MG, QD

REACTIONS (3)
  - ANAEMIA [None]
  - DIARRHOEA [None]
  - HAEMOGLOBIN DECREASED [None]
